FAERS Safety Report 7477093-0 (Version None)
Quarter: 2011Q2

REPORT INFORMATION
  Report Type: 
  Country: None (occurrence: None)
  Receive Date: 20110512
  Receipt Date: 20110502
  Transmission Date: 20111010
  Serious: Yes (Other)
  Sender: FDA-Public Use
  Company Number: US-MPIJNJ-2011-01793

PATIENT
  Age: 54 Year
  Sex: Female
  Weight: 83.9 kg

DRUGS (8)
  1. PRILOSEC [Concomitant]
     Indication: PRODUCT USED FOR UNKNOWN INDICATION
  2. MEDROL [Concomitant]
     Indication: PRODUCT USED FOR UNKNOWN INDICATION
  3. TRAMADOL HCL [Concomitant]
     Indication: PRODUCT USED FOR UNKNOWN INDICATION
  4. ZOMETA [Concomitant]
     Indication: PRODUCT USED FOR UNKNOWN INDICATION
     Dosage: UNK
  5. VELCADE [Suspect]
     Indication: MULTIPLE MYELOMA
     Dosage: 2.41 MG, CYCLIC
     Route: 042
     Dates: start: 20110221
  6. REVLIMID [Suspect]
     Indication: MULTIPLE MYELOMA
  7. DURAGESIC-100 [Concomitant]
     Indication: PRODUCT USED FOR UNKNOWN INDICATION
     Route: 061
  8. DECADRON [Suspect]
     Indication: MULTIPLE MYELOMA

REACTIONS (1)
  - UVEITIS [None]
